FAERS Safety Report 10231084 (Version 2)
Quarter: 2014Q2

REPORT INFORMATION
  Report Type: Report from Study
  Country: US (occurrence: US)
  Receive Date: 20140611
  Receipt Date: 20140619
  Transmission Date: 20141212
  Serious: Yes (Hospitalization, Other)
  Sender: FDA-Public Use
  Company Number: US-BRISTOL-MYERS SQUIBB COMPANY-20939690

PATIENT
  Age: 68 Year
  Sex: Female
  Weight: 54.6 kg

DRUGS (22)
  1. NIVOLUMAB [Suspect]
     Indication: GLIOBLASTOMA
     Dosage: RECENT DOSE:13MAY2014
     Route: 042
     Dates: start: 20140422
  2. IPILIMUMAB [Suspect]
     Indication: GLIOBLASTOMA
     Dosage: RECENT DOSE:13MAY2014
     Route: 042
     Dates: start: 20140422
  3. DOCUSATE SODIUM [Concomitant]
     Route: 048
  4. SENNA [Concomitant]
     Dosage: 1 DF:2 TABS BEDTIME NIGHTLY
     Route: 048
  5. PANTOPRAZOLE [Concomitant]
     Route: 048
  6. ATOVAQUONE [Concomitant]
  7. INSULIN [Concomitant]
     Dosage: DOSAGE BEFORE MEALS AND AT BEDTIME
     Route: 058
  8. VANCOMYCIN [Concomitant]
  9. PIPERACILLIN + TAZOBACTAM [Concomitant]
  10. POLYETHYLENE GLYCOL [Concomitant]
     Route: 048
  11. DEXAMETHASONE [Concomitant]
     Route: 040
  12. HYDROMORPHONE [Concomitant]
     Dosage: DOSAGE:0.2MG PCA IV CAB?PER 3HRS
     Route: 040
  13. LEVETIRACETAM [Concomitant]
     Route: 040
  14. ONDANSETRON [Concomitant]
     Route: 042
  15. METHYLPREDNISONE [Concomitant]
     Route: 042
  16. LEVALBUTEROL HCL [Concomitant]
  17. LACTULOSE [Concomitant]
     Route: 048
  18. IPRATROPIUM BROMIDE [Concomitant]
  19. MIDAZOLAM HCL INJ [Concomitant]
     Route: 042
  20. LEVOTHYROXINE SODIUM [Concomitant]
     Route: 048
  21. MYCOPHENOLATE MOFETIL [Concomitant]
     Route: 048
  22. FENTANYL [Concomitant]
     Route: 042

REACTIONS (11)
  - Cholecystitis [Not Recovered/Not Resolved]
  - Sepsis [Recovered/Resolved]
  - Pyrexia [Recovered/Resolved]
  - Lethargy [Not Recovered/Not Resolved]
  - Hypocalcaemia [Recovered/Resolved]
  - Hypomagnesaemia [Recovered/Resolved]
  - Alanine aminotransferase increased [Not Recovered/Not Resolved]
  - Sinus tachycardia [Recovered/Resolved]
  - Hypotension [Recovered/Resolved]
  - Aspartate aminotransferase increased [Not Recovered/Not Resolved]
  - Thyroiditis [Unknown]
